FAERS Safety Report 15151000 (Version 6)
Quarter: 2019Q2

REPORT INFORMATION
  Report Type: Spontaneous
  Country: US (occurrence: US)
  Receive Date: 20180716
  Receipt Date: 20190530
  Transmission Date: 20190711
  Serious: Yes (Other)
  Sender: FDA-Public Use
  Company Number: US-SA-2018SA183950

PATIENT
  Age: 47 Year
  Sex: Female
  Weight: 79.37 kg

DRUGS (14)
  1. BACLOFEN. [Concomitant]
     Active Substance: BACLOFEN
  2. VITAMIN C [Concomitant]
     Active Substance: ASCORBIC ACID
  3. BELSOMRA [Concomitant]
     Active Substance: SUVOREXANT
     Dosage: UNK
  4. AUBAGIO [Suspect]
     Active Substance: TERIFLUNOMIDE
     Indication: MULTIPLE SCLEROSIS
     Dosage: 14 MG, QD
     Route: 048
     Dates: start: 2017
  5. CLARITIN [Concomitant]
     Active Substance: LORATADINE
     Dosage: UNK, Q12H
  6. TOPAMAX [Concomitant]
     Active Substance: TOPIRAMATE
     Indication: MULTIPLE SCLEROSIS
  7. NORVASC [Concomitant]
     Active Substance: AMLODIPINE BESYLATE
  8. MIRALAX [Concomitant]
     Active Substance: POLYETHYLENE GLYCOL 3350
  9. VITAMIN D [ERGOCALCIFEROL] [Concomitant]
     Active Substance: ERGOCALCIFEROL
  10. AMPYRA [Concomitant]
     Active Substance: DALFAMPRIDINE
  11. MYRBETRIQ [Concomitant]
     Active Substance: MIRABEGRON
     Dosage: UNK, QD
  12. DALFAMPRIDINE. [Concomitant]
     Active Substance: DALFAMPRIDINE
  13. SYNTHROID [Concomitant]
     Active Substance: LEVOTHYROXINE SODIUM
  14. IMITREX [Concomitant]
     Active Substance: SUMATRIPTAN SUCCINATE

REACTIONS (4)
  - Depression [Unknown]
  - Alopecia [Not Recovered/Not Resolved]
  - Gait disturbance [Unknown]
  - Multiple sclerosis [Unknown]
